FAERS Safety Report 24232108 (Version 1)
Quarter: 2024Q3

REPORT INFORMATION
  Report Type: Spontaneous
  Country: US (occurrence: None)
  Receive Date: 20240820
  Receipt Date: 20240820
  Transmission Date: 20241016
  Serious: Yes (Other)
  Sender: Public
  Company Number: None

PATIENT
  Age: 67 Year
  Sex: Male
  Weight: 112 kg

DRUGS (1)
  1. CABENUVA [Suspect]
     Active Substance: CABOTEGRAVIR\RILPIVIRINE
     Indication: HIV infection
     Dosage: 6 ML 1 DOSE INTRAMUSCULAR ?
     Route: 030
     Dates: start: 20240626, end: 20240628

REACTIONS (1)
  - Injection site pain [None]

NARRATIVE: CASE EVENT DATE: 20240820
